FAERS Safety Report 11287697 (Version 3)
Quarter: 2019Q1

REPORT INFORMATION
  Report Type: Spontaneous
  Country: US (occurrence: US)
  Receive Date: 20150721
  Receipt Date: 20190320
  Transmission Date: 20190417
  Serious: Yes (Other)
  Sender: FDA-Public Use
  Company Number: US-PFIZER INC-2015237326

PATIENT
  Age: 41 Year
  Sex: Female
  Weight: 77 kg

DRUGS (6)
  1. DILANTIN [Suspect]
     Active Substance: PHENYTOIN
     Dosage: 100 MG, 2X/DAY
     Route: 048
     Dates: start: 1992
  2. ZARONTIN [Suspect]
     Active Substance: ETHOSUXIMIDE
     Dosage: 100 MG, UNK
  3. ZARONTIN [Suspect]
     Active Substance: ETHOSUXIMIDE
     Indication: PETIT MAL EPILEPSY
     Dosage: UNK
     Dates: start: 1965, end: 1991
  4. DILANTIN [Suspect]
     Active Substance: PHENYTOIN
     Indication: SEIZURE
     Dosage: UNK
     Route: 048
     Dates: start: 1965, end: 1991
  5. ZARONTIN [Suspect]
     Active Substance: ETHOSUXIMIDE
     Dosage: UNK
     Dates: start: 1965, end: 1985
  6. ZARONTIN [Suspect]
     Active Substance: ETHOSUXIMIDE
     Dosage: UNK (2 WEEKS SUPPLY)

REACTIONS (8)
  - Feeling abnormal [Unknown]
  - Hangover [Unknown]
  - Gait disturbance [Unknown]
  - Seizure [Unknown]
  - Foot deformity [Unknown]
  - Neuroma [Unknown]
  - Overdose [Unknown]
  - Reaction to excipient [Unknown]

NARRATIVE: CASE EVENT DATE: 1991
